FAERS Safety Report 8452292-X (Version None)
Quarter: 2012Q2

REPORT INFORMATION
  Report Type: 
  Country: None (occurrence: None)
  Receive Date: 20120620
  Receipt Date: 20120404
  Transmission Date: 20120825
  Serious: No
  Sender: FDA-Public Use
  Company Number: US-VERTEX PHARMACEUTICALS INC.-AE-2012-004911

PATIENT
  Sex: Male
  Weight: 104.42 kg

DRUGS (6)
  1. INTERFERON [Concomitant]
     Indication: HEPATITIS C
     Dates: start: 20120323
  2. LISINOPRIL [Concomitant]
  3. RIBAVIRIN [Concomitant]
     Indication: HEPATITIS C
     Dates: start: 20120323
  4. OMEPRAZOLE [Concomitant]
  5. ACETAMINOPHEN [Concomitant]
     Route: 048
  6. INCIVEK [Suspect]
     Indication: HEPATITIS C
     Route: 048
     Dates: start: 20120323

REACTIONS (5)
  - FATIGUE [None]
  - NAUSEA [None]
  - FAECES DISCOLOURED [None]
  - PYREXIA [None]
  - PAIN [None]
